FAERS Safety Report 8967859 (Version 1)
Quarter: 2013Q1

REPORT INFORMATION
  Report Type: Spontaneous
  Country: US (occurrence: None)
  Receive Date: 20121213
  Receipt Date: 20121213
  Transmission Date: 20140127
  Serious: Yes (Hospitalization)
  Sender: FDA-Public Use
  Company Number: None

PATIENT
  Age: 82 Year
  Sex: Male

DRUGS (1)
  1. VELCADE [Suspect]
     Indication: PLASMA CELL MYELOMA
     Dates: start: 201205, end: 201207

REACTIONS (4)
  - Weight decreased [None]
  - Abasia [None]
  - Loss of consciousness [None]
  - Neuropathy peripheral [None]
